FAERS Safety Report 6655558-9 (Version None)
Quarter: 2010Q1

REPORT INFORMATION
  Report Type: 
  Country: None (occurrence: None)
  Receive Date: 20100329
  Receipt Date: 20100317
  Transmission Date: 20100710
  Serious: Yes (Other)
  Sender: FDA-Public Use
  Company Number: US-PFIZER INC-2010034685

PATIENT
  Sex: Female
  Weight: 61 kg

DRUGS (1)
  1. ALDACTONE [Suspect]
     Dosage: 100 MG, 2X/DAY
     Route: 048

REACTIONS (1)
  - BENIGN NEOPLASM OF THYROID GLAND [None]
